FAERS Safety Report 12930080 (Version 1)
Quarter: 2016Q4

REPORT INFORMATION
  Report Type: Spontaneous
  Country: EG (occurrence: EG)
  Receive Date: 20161110
  Receipt Date: 20161110
  Transmission Date: 20170207
  Serious: Yes (Hospitalization, Disabling)
  Sender: FDA-Public Use
  Company Number: EG-NOVOPROD-517910

PATIENT
  Age: 64 Year
  Sex: Male
  Weight: 67 kg

DRUGS (3)
  1. NEUROVIT                           /00056102/ [Concomitant]
     Indication: NEUROPATHY PERIPHERAL
     Dosage: SINGLE
     Route: 048
  2. MIXTARD HUMAN 70/30 [Suspect]
     Active Substance: INSULIN HUMAN
     Indication: DIABETES MELLITUS
     Dosage: 46 IU, QD (28 IU MORNING AND 18 IU AT NIGHT)
     Route: 058
  3. MIXTARD 30 HM PENFILL [Suspect]
     Active Substance: INSULIN HUMAN
     Indication: DIABETES MELLITUS
     Dosage: 46 IU, QD
     Route: 058

REACTIONS (2)
  - Foot amputation [Recovered/Resolved]
  - Finger amputation [Recovered/Resolved]
